FAERS Safety Report 24624447 (Version 1)
Quarter: 2024Q4

REPORT INFORMATION
  Report Type: Spontaneous
  Country: US (occurrence: None)
  Receive Date: 20241114
  Receipt Date: 20241114
  Transmission Date: 20250114
  Serious: No
  Sender: Public
  Company Number: None

PATIENT
  Age: 30 Year
  Sex: Female
  Weight: 106 kg

DRUGS (1)
  1. BUTORPHANOL [Suspect]
     Active Substance: BUTORPHANOL

REACTIONS (3)
  - Feeling hot [None]
  - Dizziness [None]
  - Eye movement disorder [None]

NARRATIVE: CASE EVENT DATE: 20241016
